FAERS Safety Report 6269080-5 (Version None)
Quarter: 2009Q3

REPORT INFORMATION
  Report Type: 
  Country: None (occurrence: None)
  Receive Date: 20090715
  Receipt Date: 20090708
  Transmission Date: 20100115
  Serious: Yes (Hospitalization)
  Sender: FDA-Public Use
  Company Number: FR-PFIZER INC-2009237381

PATIENT
  Age: 56 Year

DRUGS (4)
  1. SOLU-MEDROL [Suspect]
     Dosage: UNK
     Route: 040
     Dates: start: 20080912, end: 20080915
  2. CORTANCYL [Suspect]
     Dosage: UNK
     Route: 048
     Dates: start: 20070426
  3. SOLUPRED [Suspect]
     Dosage: UNK
     Route: 048
     Dates: start: 20090301
  4. TEGELINE [Suspect]
     Indication: CHORIORETINOPATHY
     Dosage: COURSES, CYCLIC
     Route: 041
     Dates: start: 20080912

REACTIONS (1)
  - OPTIC NEUROPATHY [None]
